FAERS Safety Report 9857979 (Version 1)
Quarter: 2014Q1

REPORT INFORMATION
  Report Type: Report from Study
  Country: FR (occurrence: FR)
  Receive Date: 20140131
  Receipt Date: 20140131
  Transmission Date: 20141002
  Serious: Yes (Hospitalization)
  Sender: FDA-Public Use
  Company Number: FR-ROCHE-1342097

PATIENT
  Sex: Female

DRUGS (3)
  1. RITUXIMAB [Suspect]
     Indication: RHEUMATOID ARTHRITIS
     Route: 065
     Dates: start: 20080201
  2. RITUXIMAB [Suspect]
     Route: 065
     Dates: start: 20080219
  3. CORTANCYL [Concomitant]

REACTIONS (1)
  - Sciatica [Recovered/Resolved]
